FAERS Safety Report 5082737-7 (Version None)
Quarter: 2006Q3

REPORT INFORMATION
  Report Type: 
  Country: None (occurrence: None)
  Receive Date: 20060816
  Receipt Date: 20060816
  Transmission Date: 20061208
  Serious: No
  Sender: FDA-Public Use
  Company Number: None

PATIENT
  Age: 54 Year
  Sex: Male
  Weight: 79.7877 kg

DRUGS (2)
  1. OXALIPLATIN [Suspect]
     Indication: RECTAL CANCER METASTATIC
     Dosage: 166MG  IVPB  OVER 2 HR
     Dates: start: 20060720
  2. LEUCOVORIN CALCIUM [Suspect]
     Dosage: 390 MG IVPB OVER 2HR
     Dates: start: 20060720

REACTIONS (5)
  - COUGH [None]
  - INFUSION RELATED REACTION [None]
  - NASAL CONGESTION [None]
  - PARAESTHESIA [None]
  - URTICARIA [None]
